FAERS Safety Report 8082969-X (Version None)
Quarter: 2012Q1

REPORT INFORMATION
  Report Type: 
  Country: None (occurrence: None)
  Receive Date: 20120127
  Receipt Date: 20110309
  Transmission Date: 20120608
  Serious: No
  Sender: FDA-Public Use
  Company Number: US-ABBOTT-11P-163-0710409-00

PATIENT
  Age: 63 Year
  Sex: Female

DRUGS (8)
  1. LASIX [Concomitant]
     Indication: PRODUCT USED FOR UNKNOWN INDICATION
  2. DETROL LA [Concomitant]
     Indication: POLLAKIURIA
  3. SINGULAIR [Concomitant]
     Indication: HYPERSENSITIVITY
  4. LORAZEPAM [Concomitant]
     Indication: ANXIETY
  5. HUMIRA [Suspect]
     Indication: PSORIASIS
     Dates: start: 20110201
  6. OMEPRAZOLE [Concomitant]
     Indication: GASTROOESOPHAGEAL REFLUX DISEASE
  7. SPIRONOLACTONE [Concomitant]
     Indication: PRODUCT USED FOR UNKNOWN INDICATION
  8. VITAMIN TAB [Concomitant]
     Indication: PRODUCT USED FOR UNKNOWN INDICATION
     Dosage: DAILY

REACTIONS (1)
  - INJECTION SITE PAIN [None]
